FAERS Safety Report 9883841 (Version 4)
Quarter: 2015Q2

REPORT INFORMATION
  Report Type: Spontaneous
  Country: US (occurrence: US)
  Receive Date: 20140210
  Receipt Date: 20150625
  Transmission Date: 20150821
  Serious: Yes (Death, Hospitalization, Congenital Anomaly, Other)
  Sender: FDA-Public Use
  Company Number: US-ELI_LILLY_AND_COMPANY-US201402000335

PATIENT

DRUGS (4)
  1. PRENAT                             /00023601/ [Concomitant]
     Dosage: UNK UNK, UNKNOWN
     Route: 064
  2. SUDAFED [Concomitant]
     Active Substance: PSEUDOEPHEDRINE HYDROCHLORIDE
     Dosage: UNK UNK, UNKNOWN
     Route: 064
  3. PROZAC [Suspect]
     Active Substance: FLUOXETINE HYDROCHLORIDE
     Indication: PRODUCT USED FOR UNKNOWN INDICATION
     Dosage: 1 DF, UNKNOWN
     Route: 064
  4. AMPICILLIN [Concomitant]
     Active Substance: AMPICILLIN
     Dosage: UNK UNK, UNKNOWN
     Route: 064

REACTIONS (21)
  - Oxygen saturation decreased [Unknown]
  - Occult blood [Unknown]
  - Double outlet right ventricle [Unknown]
  - Transposition of the great vessels [Unknown]
  - Foetal exposure during pregnancy [Recovered/Resolved]
  - Supraventricular tachycardia [Unknown]
  - Subclavian vein thrombosis [Unknown]
  - Univentricular heart [Fatal]
  - Pleural effusion [Unknown]
  - Atrial flutter [Unknown]
  - Device related infection [Unknown]
  - Pulmonary valve stenosis [Unknown]
  - Univentricular heart [Unknown]
  - Atelectasis [Unknown]
  - Staphylococcal bacteraemia [Unknown]
  - Ventricular hypoplasia [Unknown]
  - Candida infection [Unknown]
  - Ventricular septal defect [Unknown]
  - Mitral valve incompetence [Unknown]
  - Atrial septal defect [Unknown]
  - Citrobacter infection [Unknown]
